FAERS Safety Report 15601958 (Version 1)
Quarter: 2018Q4

REPORT INFORMATION
  Report Type: Spontaneous
  Country: US (occurrence: US)
  Receive Date: 20181109
  Receipt Date: 20181109
  Transmission Date: 20190205
  Serious: Yes (Other)
  Sender: FDA-Public Use
  Company Number: None

PATIENT
  Sex: Female

DRUGS (7)
  1. REPATHA [Suspect]
     Active Substance: EVOLOCUMAB
     Dosage: ?          OTHER FREQUENCY:EVERY 2 WEEKS;?
     Route: 058
  2. SYNTHROID [Concomitant]
     Active Substance: LEVOTHYROXINE SODIUM
  3. SPIRONOLACTONE 50 MG [Concomitant]
     Active Substance: SPIRONOLACTONE
  4. DIGOXIN 0.125 [Concomitant]
  5. COUMADIN 3 MG [Concomitant]
  6. BISOPROLOL 5 MG [Concomitant]
     Active Substance: BISOPROLOL
  7. PREMARIN 0.625 MG [Concomitant]

REACTIONS (2)
  - Crying [None]
  - Depression [None]
